FAERS Safety Report 8998291 (Version 2)
Quarter: 2013Q1

REPORT INFORMATION
  Report Type: Spontaneous
  Country: MX (occurrence: MX)
  Receive Date: 20130104
  Receipt Date: 20130114
  Transmission Date: 20140127
  Serious: Yes (Death, Hospitalization)
  Sender: FDA-Public Use
  Company Number: PHHY2013MX001109

PATIENT
  Age: 88 Year
  Sex: Female

DRUGS (2)
  1. EXFORGE [Suspect]
     Indication: HYPERTENSION
     Dosage: 1 DF (160 MG VALS AND 5 MG AMLO), DAILY
     Route: 048
     Dates: start: 2008
  2. RISPERIDONE [Concomitant]
     Dosage: 0.25 MG, UNK
     Dates: start: 2011, end: 20120926

REACTIONS (9)
  - Gastrointestinal disorder [Fatal]
  - Umbilical hernia, obstructive [Fatal]
  - Abdominal pain upper [Fatal]
  - Diarrhoea [Fatal]
  - Pneumonia [Fatal]
  - Abdominal sepsis [Fatal]
  - Septic shock [Fatal]
  - Renal failure [Fatal]
  - Hypertension [Fatal]
